FAERS Safety Report 14553536 (Version 4)
Quarter: 2018Q2

REPORT INFORMATION
  Report Type: Spontaneous
  Country: JP (occurrence: JP)
  Receive Date: 20180220
  Receipt Date: 20180620
  Transmission Date: 20180711
  Serious: Yes (Other)
  Sender: FDA-Public Use
  Company Number: JP-PFIZER INC-2018066151

PATIENT
  Age: 6 Decade
  Sex: Female

DRUGS (3)
  1. AXITINIB [Suspect]
     Active Substance: AXITINIB
     Indication: RENAL CANCER
     Dosage: UNK
  2. EVEROLIMUS. [Suspect]
     Active Substance: EVEROLIMUS
     Indication: RENAL CANCER
  3. PAZOPANIB [Concomitant]
     Active Substance: PAZOPANIB
     Indication: RENAL CANCER

REACTIONS (1)
  - Interstitial lung disease [Unknown]
